FAERS Safety Report 24387551 (Version 1)
Quarter: 2024Q4

REPORT INFORMATION
  Report Type: Spontaneous
  Country: US (occurrence: None)
  Receive Date: 20241001
  Receipt Date: 20241001
  Transmission Date: 20250115
  Serious: Yes (Other)
  Sender: Public
  Company Number: None

PATIENT
  Age: 45 Year
  Sex: Female
  Weight: 54 kg

DRUGS (2)
  1. CIPRO [Suspect]
     Active Substance: CIPROFLOXACIN HYDROCHLORIDE
  2. Azo Bladder Control [Concomitant]

REACTIONS (6)
  - Tendon pain [None]
  - Arthralgia [None]
  - Gait inability [None]
  - Central nervous system injury [None]
  - Neuralgia [None]
  - Brain fog [None]

NARRATIVE: CASE EVENT DATE: 20240222
